FAERS Safety Report 6361995-2 (Version None)
Quarter: 2009Q3

REPORT INFORMATION
  Report Type: 
  Country: None (occurrence: None)
  Receive Date: 20090918
  Receipt Date: 20090910
  Transmission Date: 20100115
  Serious: Yes (Hospitalization)
  Sender: FDA-Public Use
  Company Number: AT-AMGEN-US364186

PATIENT
  Age: 84 Year
  Sex: Female
  Weight: 62 kg

DRUGS (10)
  1. ENBREL [Suspect]
     Indication: RHEUMATOID ARTHRITIS
     Dosage: 50 MG PER WEEK
     Route: 058
     Dates: start: 20070705
  2. METAMIZOLE [Suspect]
     Indication: RHEUMATOID ARTHRITIS
     Dosage: 1000 MG PER DAY
     Route: 065
  3. METHOTREXATE [Suspect]
     Indication: RHEUMATOID ARTHRITIS
     Dosage: 20 MG PER WEEK
     Route: 065
  4. THYREX [Concomitant]
     Route: 065
  5. ACTONEL [Concomitant]
     Route: 065
  6. ACECOMB SEMI [Concomitant]
     Route: 065
  7. MONOKET [Concomitant]
     Route: 065
  8. MARCUMAR [Concomitant]
     Route: 065
  9. OMEPRAZOLE [Concomitant]
     Route: 065
  10. CARVEDILOL [Concomitant]
     Route: 065

REACTIONS (1)
  - STOMATITIS [None]
